FAERS Safety Report 18784542 (Version 1)
Quarter: 2021Q1

REPORT INFORMATION
  Report Type: Spontaneous
  Country: FR (occurrence: FR)
  Receive Date: 20210125
  Receipt Date: 20210125
  Transmission Date: 20210428
  Serious: Yes (Other)
  Sender: FDA-Public Use
  Company Number: FR-009507513-2101FRA009067

PATIENT
  Age: 36 Year
  Sex: Female
  Weight: 68.6 kg

DRUGS (25)
  1. PUREGON [FOLLITROPIN BETA] [Suspect]
     Active Substance: FOLLITROPIN BETA
     Dosage: 3 DF, QD (ON EVENING)
     Route: 058
     Dates: start: 20040916, end: 20040916
  2. GONADOTROPIN, CHORIONIC [Suspect]
     Active Substance: CHORIOGONADOTROPIN ALFA
     Indication: COMPLICATION OF PREGNANCY
     Dosage: 1 DF, QD (AFTER 11 PM)
     Route: 030
     Dates: start: 200201, end: 200201
  3. PUREGON [FOLLITROPIN BETA] [Suspect]
     Active Substance: FOLLITROPIN BETA
     Indication: IN VITRO FERTILISATION
     Dosage: 1 DF, QD (8TH , 9TH OF MENSTRUATION)
     Route: 058
     Dates: start: 200201, end: 200201
  4. CLOMID [Suspect]
     Active Substance: CLOMIPHENE CITRATE
     Dosage: 2 DF, QD  (2ND DAY OF MENSTRUATION UNTIL THE 6TH DAY)
     Route: 048
     Dates: start: 20050520, end: 20050524
  5. GONAL-F [Concomitant]
     Active Substance: FOLLITROPIN
     Dosage: 3 DF
     Route: 058
     Dates: start: 20050526, end: 20050526
  6. CETROTIDE [Concomitant]
     Active Substance: CETRORELIX ACETATE
     Dosage: 1 DF, QD
     Route: 058
     Dates: start: 200505, end: 200505
  7. GONADOTROPIN, CHORIONIC [Suspect]
     Active Substance: CHORIOGONADOTROPIN ALFA
     Indication: IN VITRO FERTILISATION
     Dosage: 1 DF, QD (AFTER 11 PM)
     Route: 030
     Dates: start: 200209, end: 200209
  8. GONADOTROPIN, CHORIONIC [Suspect]
     Active Substance: CHORIOGONADOTROPIN ALFA
     Dosage: 1 DF, QD (AFTER 11 PM)
     Route: 030
     Dates: start: 200211, end: 200211
  9. CLOMID [Suspect]
     Active Substance: CLOMIPHENE CITRATE
     Dosage: 2 DF, QD  (2ND DAY OF MENSTRUATION UNTIL THE 6TH DAY)
     Route: 048
     Dates: start: 20040910, end: 20040914
  10. GONADOTROPIN, CHORIONIC [Suspect]
     Active Substance: CHORIOGONADOTROPIN ALFA
     Dosage: 1 DF, QD (AFTER 11 PM)
     Route: 030
     Dates: start: 200304, end: 200304
  11. CLOMID [Suspect]
     Active Substance: CLOMIPHENE CITRATE
     Dosage: 2 DF, QD (2ND DAY OF MENSTRUATION UNTIL THE 6TH DAY)
     Route: 048
     Dates: start: 200304, end: 200304
  12. PUREGON [FOLLITROPIN BETA] [Suspect]
     Active Substance: FOLLITROPIN BETA
     Dosage: 1 DF, QD (ON THE 8TH , 9TH OF MENSTRUATION)
     Route: 058
     Dates: start: 200211, end: 200211
  13. PUREGON [FOLLITROPIN BETA] [Suspect]
     Active Substance: FOLLITROPIN BETA
     Dosage: 1 DF, QD (ON THE 8TH , 9TH OF MENSTRUATION)
     Route: 058
     Dates: start: 200304, end: 200304
  14. CLOMID [Suspect]
     Active Substance: CLOMIPHENE CITRATE
     Indication: COMPLICATION OF PREGNANCY
     Dosage: 2 DF, QD (2ND DAY OF MENSTRUATION, UNTIL THE 6TH DAY)
     Route: 048
     Dates: start: 200201, end: 200201
  15. CLOMID [Suspect]
     Active Substance: CLOMIPHENE CITRATE
     Dosage: 2 DF, QD (2ND DAY OF MENSTRUATION UNTIL THE 6TH DAY)
     Route: 048
     Dates: start: 200211, end: 200211
  16. MINIDRIL [Concomitant]
     Active Substance: ETHINYL ESTRADIOL\LEVONORGESTREL
     Dosage: 1 DF, QD (ON THE 5ND DAY OF MENSTRUATION FOR 21 TO 28 DAYS)
     Route: 048
     Dates: start: 20040815, end: 20050419
  17. GONAL-F [Concomitant]
     Active Substance: FOLLITROPIN
     Dosage: 3 DF
     Route: 058
     Dates: start: 20050522, end: 20050522
  18. PUREGON [FOLLITROPIN BETA] [Suspect]
     Active Substance: FOLLITROPIN BETA
     Indication: COMPLICATION OF PREGNANCY
     Dosage: 1 DF, QD (ON THE 8TH , 9TH OF MENSTRUATION)
     Route: 058
     Dates: start: 200209, end: 200209
  19. PUREGON [FOLLITROPIN BETA] [Suspect]
     Active Substance: FOLLITROPIN BETA
     Dosage: 3 DF, QD (ON EVENING)
     Route: 058
     Dates: start: 20040914, end: 20040914
  20. GONADOTROPIN, CHORIONIC [Suspect]
     Active Substance: CHORIOGONADOTROPIN ALFA
     Dosage: 2 DF, QD (AFTER 11 PM)
     Route: 030
     Dates: start: 200505, end: 200505
  21. PUREGON [FOLLITROPIN BETA] [Suspect]
     Active Substance: FOLLITROPIN BETA
     Dosage: 3 DF, QD (ON EVENING)
     Route: 058
     Dates: start: 20040912, end: 20040912
  22. GONADOTROPIN, CHORIONIC [Suspect]
     Active Substance: CHORIOGONADOTROPIN ALFA
     Dosage: 2 DF, QD (AFTER 11 PM)
     Route: 030
     Dates: start: 200409, end: 200409
  23. GONAL-F [Concomitant]
     Active Substance: FOLLITROPIN
     Dosage: 3 DF
     Route: 058
     Dates: start: 20050524, end: 20050524
  24. CETROTIDE [Concomitant]
     Active Substance: CETRORELIX ACETATE
     Dosage: 1 DF, QD
     Route: 058
     Dates: start: 200408, end: 200408
  25. CLOMID [Suspect]
     Active Substance: CLOMIPHENE CITRATE
     Indication: IN VITRO FERTILISATION
     Dosage: 2 DF, QD (2ND DAY OF MENSTRUATION UNTIL THE 6TH DAY)
     Route: 048
     Dates: start: 200209, end: 200209

REACTIONS (7)
  - Hypoglycaemia [Unknown]
  - Unevaluable event [Unknown]
  - Stress [Unknown]
  - Fatigue [Unknown]
  - Gamma-glutamyltransferase abnormal [Unknown]
  - Type 2 diabetes mellitus [Unknown]
  - Off label use [Unknown]

NARRATIVE: CASE EVENT DATE: 20050520
